FAERS Safety Report 7339679-3 (Version None)
Quarter: 2011Q1

REPORT INFORMATION
  Report Type: 
  Country: None (occurrence: None)
  Receive Date: 20110309
  Receipt Date: 20110223
  Transmission Date: 20110831
  Serious: Yes (Other)
  Sender: FDA-Public Use
  Company Number: US-SHIRE-SPV1-2011-00334

PATIENT
  Sex: Female
  Weight: 74.83 kg

DRUGS (2)
  1. PRENATAL VITAMINS                  /01549301/ [Concomitant]
     Indication: PREGNANCY
     Dosage: UNK
     Dates: start: 20080101
  2. PENTASA [Suspect]
     Indication: CROHN'S DISEASE
     Dosage: 500 MG, 1X/DAY:QD (8 CAPSULES)
     Route: 048
     Dates: start: 20030101

REACTIONS (3)
  - GESTATIONAL DIABETES [None]
  - DRUG EXPOSURE DURING PREGNANCY [None]
  - OFF LABEL USE [None]
